FAERS Safety Report 24538767 (Version 1)
Quarter: 2024Q4

REPORT INFORMATION
  Report Type: Report from Study
  Country: KR (occurrence: KR)
  Receive Date: 20241023
  Receipt Date: 20241023
  Transmission Date: 20250115
  Serious: Yes (Hospitalization)
  Sender: SANDOZ
  Company Number: KR-BEIGENE-BGN-2023-005862

PATIENT
  Age: 54 Year
  Sex: Male
  Weight: 72 kg

DRUGS (13)
  1. CARBOPLATIN [Suspect]
     Active Substance: CARBOPLATIN
     Indication: Non-small cell lung cancer metastatic
     Dosage: 750 MG
     Route: 042
     Dates: start: 20220609
  2. OCIPERLIMAB [Suspect]
     Active Substance: OCIPERLIMAB
     Indication: Non-small cell lung cancer metastatic
     Dosage: UNK
     Route: 065
     Dates: start: 20220609
  3. PEMETREXED [Suspect]
     Active Substance: PEMETREXED
     Dosage: 950 MG, Q3W
     Route: 065
     Dates: start: 20230531
  4. PEMETREXED [Suspect]
     Active Substance: PEMETREXED
     Indication: Non-small cell lung cancer metastatic
     Dosage: 950 MG
     Route: 017
     Dates: start: 20220609
  5. TISLELIZUMAB [Suspect]
     Active Substance: TISLELIZUMAB
     Indication: Non-small cell lung cancer metastatic
     Dosage: 200 MG
     Route: 042
     Dates: start: 20220609
  6. ACTINAMIDE [Concomitant]
     Indication: Premedication
     Dosage: UNK
     Route: 065
     Dates: start: 20220423
  7. FOLCID [Concomitant]
     Indication: Premedication
     Dosage: UNK
     Route: 065
     Dates: start: 20220609
  8. MAGMIL S [Concomitant]
     Indication: Constipation prophylaxis
     Dosage: UNK
     Route: 065
     Dates: start: 20220831
  9. MUCOSOL [Concomitant]
     Active Substance: ACETYLCYSTEINE
     Indication: Productive cough
     Dosage: UNK
     Route: 065
     Dates: start: 20230510, end: 20230614
  10. NORVASC [Concomitant]
     Active Substance: AMLODIPINE BESYLATE
     Indication: Hypertension
     Dosage: 950 MG
     Route: 042
     Dates: start: 20220609
  11. RABEPRAZOLE SODIUM [Concomitant]
     Active Substance: RABEPRAZOLE SODIUM
     Indication: Gastritis prophylaxis
     Dosage: UNK
     Route: 065
     Dates: start: 20220720, end: 202302
  12. LEVOTHYROXINE SODIUM [Concomitant]
     Active Substance: LEVOTHYROXINE SODIUM
     Indication: Blood thyroid stimulating hormone increased
     Dosage: UNK
     Route: 065
     Dates: start: 20230511, end: 20230522
  13. LEVOTHYROXINE SODIUM [Concomitant]
     Active Substance: LEVOTHYROXINE SODIUM
     Indication: Hypothyroidism
     Dosage: UNK
     Route: 065
     Dates: start: 20230523

REACTIONS (1)
  - Pleural effusion [Recovered/Resolved]

NARRATIVE: CASE EVENT DATE: 20230616
